FAERS Safety Report 19891168 (Version 2)
Quarter: 2022Q2

REPORT INFORMATION
  Report Type: Spontaneous
  Country: CO (occurrence: CO)
  Receive Date: 20210928
  Receipt Date: 20220510
  Transmission Date: 20220720
  Serious: Yes (Other)
  Sender: FDA-Public Use
  Company Number: CO-PFIZER INC-2021142429

PATIENT
  Age: 71 Year
  Sex: Male

DRUGS (2)
  1. XELJANZ XR [Suspect]
     Active Substance: TOFACITINIB CITRATE
     Indication: Rheumatoid arthritis
     Dosage: 11 MG, 1X/DAY
     Route: 048
     Dates: start: 2020
  2. XELJANZ XR [Suspect]
     Active Substance: TOFACITINIB CITRATE
     Dosage: 11 MG, EVERY OTHER DAY
     Route: 048

REACTIONS (13)
  - Myocardial infarction [Not Recovered/Not Resolved]
  - Decreased immune responsiveness [Unknown]
  - Exfoliative rash [Unknown]
  - Loss of personal independence in daily activities [Unknown]
  - Hypoacusis [Not Recovered/Not Resolved]
  - Fatigue [Not Recovered/Not Resolved]
  - Skin lesion [Not Recovered/Not Resolved]
  - Pain [Not Recovered/Not Resolved]
  - Pruritus [Not Recovered/Not Resolved]
  - Hyperhidrosis [Not Recovered/Not Resolved]
  - Fungal foot infection [Not Recovered/Not Resolved]
  - Off label use [Unknown]
  - Product dispensing issue [Unknown]

NARRATIVE: CASE EVENT DATE: 20210301
